FAERS Safety Report 7522329-0 (Version None)
Quarter: 2011Q2

REPORT INFORMATION
  Report Type: 
  Country: None (occurrence: None)
  Receive Date: 20110603
  Receipt Date: 20110523
  Transmission Date: 20111010
  Serious: Yes (Hospitalization, Other)
  Sender: FDA-Public Use
  Company Number: PHHY2011JP18574

PATIENT
  Sex: Male

DRUGS (23)
  1. PROGRAF [Suspect]
     Dosage: 8.0 MG, UNK
     Route: 048
     Dates: start: 20100814, end: 20100816
  2. PROGRAF [Suspect]
     Dosage: 7.0 MG, UNK
     Route: 048
     Dates: start: 20100817, end: 20100818
  3. PROGRAF [Suspect]
     Dosage: 5.0 MG, UNK
     Route: 048
     Dates: start: 20100824
  4. ENALAPRIL MALEATE [Concomitant]
     Dosage: 2.5 MG, UNK
     Route: 048
     Dates: start: 20090430
  5. NATEGLINIDE [Concomitant]
     Indication: DIABETES MELLITUS
     Dosage: 270 MG
     Route: 048
     Dates: start: 20090430, end: 20090723
  6. CERTICAN [Suspect]
     Dosage: 4 MG, UNK
     Dates: start: 20090116, end: 20090116
  7. PROGRAF [Suspect]
     Dosage: 6.0 MG, UNK
     Route: 048
     Dates: start: 20100819, end: 20100823
  8. CERTICAN [Suspect]
     Dosage: 3.5 MG, UNK
     Dates: start: 20090117, end: 20090826
  9. CERTICAN [Suspect]
     Dosage: 3 MG, UNK
     Dates: start: 20091002, end: 20100331
  10. PROGRAF [Suspect]
     Dosage: 5 MG, UNK
     Route: 048
     Dates: start: 20081003, end: 20100505
  11. PROGRAF [Suspect]
     Dosage: 4 MG, UNK
     Route: 048
     Dates: start: 20100603, end: 20100728
  12. AMARYL [Concomitant]
     Indication: DIABETES MELLITUS
     Dosage: 1 MG, UNK
     Route: 048
     Dates: start: 20090724
  13. CERTICAN [Suspect]
     Indication: HEART TRANSPLANT
     Dosage: UNK
     Route: 048
     Dates: start: 20081106
  14. PROGRAF [Suspect]
     Dosage: 4.5 MG, UNK
     Route: 048
     Dates: start: 20100729, end: 20100811
  15. CERTICAN [Suspect]
     Dosage: 3.5 MG, UNK
     Dates: start: 20100401, end: 20100813
  16. PROGRAF [Suspect]
     Dosage: 4.5 MG, UNK
     Route: 048
     Dates: start: 20100506, end: 20100602
  17. LIPITOR [Concomitant]
     Dosage: 10 MG, UNK
     Route: 048
     Dates: start: 20090327
  18. PREDNISOLONE [Suspect]
     Dosage: 5 MG, UNK
     Route: 048
     Dates: start: 20080124
  19. PROGRAF [Suspect]
     Dosage: 6.0 MG, UNK
     Route: 048
     Dates: start: 20100812, end: 20100813
  20. VENOGLOBULIN [Concomitant]
     Dosage: 20 MG, UNK
     Route: 042
     Dates: start: 20100817, end: 20100822
  21. PRAVASTATIN SODIUM [Concomitant]
     Dosage: 10 MG
     Route: 048
     Dates: start: 20080207, end: 20090326
  22. CERTICAN [Suspect]
     Dosage: 4.5 MG, UNK
     Dates: start: 20090827, end: 20091001
  23. CERTICAN [Suspect]
     Dosage: 4.5 MG, UNK
     Dates: start: 20100814

REACTIONS (3)
  - ANAEMIA [None]
  - PARVOVIRUS INFECTION [None]
  - BLOOD CREATINE PHOSPHOKINASE INCREASED [None]
